FAERS Safety Report 21031240 (Version 2)
Quarter: 2022Q3

REPORT INFORMATION
  Report Type: Other
  Country: CA (occurrence: None)
  Receive Date: 20220701
  Receipt Date: 20220722
  Transmission Date: 20221027
  Serious: Yes (Hospitalization, Other)
  Sender: FDA-Public Use
  Company Number: CA-ROCHE-3124461

PATIENT
  Sex: Female

DRUGS (8)
  1. ACTEMRA [Suspect]
     Active Substance: TOCILIZUMAB
     Indication: Rheumatoid arthritis
     Route: 042
     Dates: start: 20140311
  2. AMLODIPINE [Concomitant]
     Active Substance: AMLODIPINE BESYLATE
     Indication: Hypertension
  3. EZETIMIBE [Concomitant]
     Active Substance: EZETIMIBE
     Indication: Blood cholesterol
  4. FOLIC ACID [Concomitant]
     Active Substance: FOLIC ACID
  5. METHOTREXATE [Concomitant]
     Active Substance: METHOTREXATE
  6. PLAQUENIL [Concomitant]
     Active Substance: HYDROXYCHLOROQUINE SULFATE
  7. PREDNISONE [Concomitant]
     Active Substance: PREDNISONE
  8. SYNTHROID [Concomitant]
     Active Substance: LEVOTHYROXINE SODIUM

REACTIONS (43)
  - Viral infection [Recovered/Resolved]
  - Synovial disorder [Unknown]
  - Arthropathy [Unknown]
  - Joint range of motion decreased [Unknown]
  - Blood test abnormal [Unknown]
  - Arthralgia [Recovered/Resolved]
  - White blood cell count decreased [Unknown]
  - Off label use [Unknown]
  - Hypothyroidism [Unknown]
  - Renal impairment [Unknown]
  - Blood pressure abnormal [Unknown]
  - Musculoskeletal stiffness [Unknown]
  - Dry eye [Unknown]
  - Vitreous detachment [Unknown]
  - Upper respiratory tract infection [Unknown]
  - Dyslipidaemia [Unknown]
  - Joint swelling [Unknown]
  - Musculoskeletal stiffness [Unknown]
  - Heart rate irregular [Unknown]
  - Palpitations [Unknown]
  - Ill-defined disorder [Unknown]
  - Blood pressure increased [Unknown]
  - Papilloma [Unknown]
  - Hypotension [Unknown]
  - Chest discomfort [Unknown]
  - Rheumatoid arthritis [Unknown]
  - Thrombocytopenia [Unknown]
  - Leukopenia [Unknown]
  - Fall [Unknown]
  - Lip injury [Unknown]
  - Ill-defined disorder [Unknown]
  - Osteoarthritis [Unknown]
  - Eye disorder [Unknown]
  - Pyrexia [Recovered/Resolved]
  - Laryngitis [Recovered/Resolved]
  - Nausea [Recovered/Resolved]
  - Vomiting [Recovered/Resolved]
  - Elbow deformity [Unknown]
  - Urine analysis abnormal [Unknown]
  - Condition aggravated [Unknown]
  - Skin abrasion [Unknown]
  - Peripheral swelling [Unknown]
  - Vision blurred [Unknown]

NARRATIVE: CASE EVENT DATE: 20160101
